FAERS Safety Report 24466985 (Version 1)
Quarter: 2024Q4

REPORT INFORMATION
  Report Type: Report from Study
  Country: CA (occurrence: CA)
  Receive Date: 20241018
  Receipt Date: 20241018
  Transmission Date: 20250114
  Serious: Yes (Death, Other)
  Sender: SANDOZ
  Company Number: CA-SANDOZ-SDZ2024CA008663

PATIENT
  Sex: Female

DRUGS (4)
  1. HYRIMOZ [Suspect]
     Active Substance: ADALIMUMAB-ADAZ
     Indication: Rheumatoid arthritis
     Dosage: 40 MG, Q2W (PRE-FILLED PEN)
     Route: 058
     Dates: start: 20220507
  2. HYRIMOZ [Suspect]
     Active Substance: ADALIMUMAB-ADAZ
     Dosage: 40 MG
     Route: 058
  3. HYRIMOZ [Suspect]
     Active Substance: ADALIMUMAB-ADAZ
     Dosage: 40 MG EVERY 2 WEEKS (PRE-FILLED SYRINGE)
     Route: 058
     Dates: start: 20220507
  4. METHOTREXATE [Concomitant]
     Active Substance: METHOTREXATE
     Indication: Product used for unknown indication
     Dosage: UNK
     Route: 065

REACTIONS (10)
  - Death [Fatal]
  - Rheumatoid arthritis [Unknown]
  - Nephrolithiasis [Not Recovered/Not Resolved]
  - Limb discomfort [Unknown]
  - Gait disturbance [Unknown]
  - General physical condition abnormal [Unknown]
  - Asthenia [Unknown]
  - Arthralgia [Unknown]
  - Osteoarthritis [Unknown]
  - Drug ineffective [Unknown]
